FAERS Safety Report 23602706 (Version 1)
Quarter: 2024Q1

REPORT INFORMATION
  Report Type: Spontaneous
  Country: CN (occurrence: CN)
  Receive Date: 20240306
  Receipt Date: 20240306
  Transmission Date: 20240410
  Serious: Yes (Hospitalization)
  Sender: FDA-Public Use
  Company Number: CN-009507513-2403CHN000807

PATIENT
  Age: 62 Year
  Sex: Male
  Weight: 76 kg

DRUGS (2)
  1. KEYTRUDA [Suspect]
     Active Substance: PEMBROLIZUMAB
     Indication: Non-small cell lung cancer
     Dosage: 200 MG, EVERY 21 DAYS (Q3W), IV DRIP
     Route: 041
     Dates: start: 20230210, end: 20240125
  2. HETROMBOPAG OLAMINE [Suspect]
     Active Substance: HETROMBOPAG OLAMINE
     Indication: Platelet disorder
     Dosage: 5 MG, QD, ORAL
     Route: 048
     Dates: start: 20231227, end: 20240102

REACTIONS (6)
  - Rash pruritic [Recovering/Resolving]
  - Rash papular [Recovering/Resolving]
  - Rash vesicular [Recovering/Resolving]
  - Skin erosion [Recovering/Resolving]
  - Skin mass [Recovering/Resolving]
  - Drug eruption [Recovering/Resolving]

NARRATIVE: CASE EVENT DATE: 20231228
